FAERS Safety Report 9079132 (Version 1)
Quarter: 2013Q1

REPORT INFORMATION
  Report Type: Spontaneous
  Country: DK (occurrence: DE)
  Receive Date: 20130130
  Receipt Date: 20130130
  Transmission Date: 20140127
  Serious: Yes (Other)
  Sender: FDA-Public Use
  Company Number: DE-FRI-1000042238

PATIENT
  Age: 66 Year
  Sex: Female

DRUGS (2)
  1. CITALOPRAM [Suspect]
     Route: 048
  2. MELLERETTEN [Concomitant]

REACTIONS (2)
  - Anuria [Recovering/Resolving]
  - Urinary retention [Recovering/Resolving]
